FAERS Safety Report 14331530 (Version 3)
Quarter: 2018Q2

REPORT INFORMATION
  Report Type: Report from Study
  Country: US (occurrence: US)
  Receive Date: 20171228
  Receipt Date: 20180528
  Transmission Date: 20180711
  Serious: Yes (Hospitalization)
  Sender: FDA-Public Use
  Company Number: PHEH2017US041574

PATIENT
  Age: 68 Year
  Sex: Female

DRUGS (2)
  1. ENTRESTO [Suspect]
     Active Substance: SACUBITRIL\VALSARTAN
     Indication: PRODUCT USED FOR UNKNOWN INDICATION
     Dosage: 100 MG (SACUBITRIL 49 MG + VALSARTAN 51 MG), UNK
     Route: 048
     Dates: start: 201605, end: 201606
  2. ENTRESTO [Suspect]
     Active Substance: SACUBITRIL\VALSARTAN
     Dosage: 50 MG (SACUBITRIL 24 MG + VALSARTAN 26 MG), UNK
     Route: 065

REACTIONS (7)
  - Fluid retention [Unknown]
  - Peripheral swelling [Unknown]
  - Weight decreased [Unknown]
  - Weight increased [Recovering/Resolving]
  - Dyspnoea [Unknown]
  - Asthenia [Unknown]
  - Dysgeusia [Unknown]

NARRATIVE: CASE EVENT DATE: 201607
